FAERS Safety Report 5430118-6 (Version None)
Quarter: 2007Q3

REPORT INFORMATION
  Report Type: 
  Country: None (occurrence: None)
  Receive Date: 20070829
  Receipt Date: 20070817
  Transmission Date: 20080115
  Serious: Yes (Other)
  Sender: FDA-Public Use
  Company Number: US-PFIZER INC-2007070028

PATIENT
  Sex: Female
  Weight: 77.272 kg

DRUGS (3)
  1. CHANTIX [Suspect]
     Indication: SMOKING CESSATION THERAPY
  2. NEURONTIN [Suspect]
     Indication: PAIN
  3. NAPROSYN [Concomitant]

REACTIONS (4)
  - ACCIDENT [None]
  - CARPAL TUNNEL SYNDROME [None]
  - FEELING ABNORMAL [None]
  - NAUSEA [None]
